FAERS Safety Report 6864689-X (Version None)
Quarter: 2010Q3

REPORT INFORMATION
  Report Type: 
  Country: None (occurrence: None)
  Receive Date: 20100721
  Receipt Date: 20080331
  Transmission Date: 20110219
  Serious: No
  Sender: FDA-Public Use
  Company Number: US-PFIZER INC-2008029792

PATIENT
  Age: 49 Year
  Sex: Female
  Weight: 59.1 kg

DRUGS (4)
  1. CHANTIX [Suspect]
     Indication: SMOKING CESSATION THERAPY
     Dates: start: 20070801, end: 20071001
  2. ANTIDEPRESSANTS [Concomitant]
  3. REQUIP [Concomitant]
     Indication: RESTLESS LEGS SYNDROME
  4. IBANDRONATE SODIUM [Concomitant]

REACTIONS (4)
  - ABDOMINAL DISTENSION [None]
  - CONSTIPATION [None]
  - DISCOMFORT [None]
  - UNEVALUABLE EVENT [None]
